FAERS Safety Report 19748601 (Version 1)
Quarter: 2021Q3

REPORT INFORMATION
  Report Type: Spontaneous
  Country: US (occurrence: US)
  Receive Date: 20210826
  Receipt Date: 20210826
  Transmission Date: 20211014
  Serious: No
  Sender: FDA-Public Use
  Company Number: NVSC2021US152199

PATIENT
  Sex: Male
  Weight: 92.99 kg

DRUGS (2)
  1. ALPRAZOLAM TABLETS USP [Suspect]
     Active Substance: ALPRAZOLAM
     Indication: PRODUCT USED FOR UNKNOWN INDICATION
     Dosage: 1 MG, TID
     Route: 048
  2. BACLOFEN. [Concomitant]
     Active Substance: BACLOFEN
     Indication: MUSCLE RELAXANT THERAPY
     Dosage: 10 MG, QD(ONE PILL TWICE A DAY BY MOUTH)
     Route: 065

REACTIONS (6)
  - Ear pain [Unknown]
  - Vth nerve injury [Unknown]
  - Herpes zoster [Recovering/Resolving]
  - Vision blurred [Unknown]
  - Trismus [Unknown]
  - Hypoacusis [Unknown]

NARRATIVE: CASE EVENT DATE: 2015
